FAERS Safety Report 22200724 (Version 1)
Quarter: 2023Q2

REPORT INFORMATION
  Report Type: Spontaneous
  Country: CN (occurrence: None)
  Receive Date: 20230412
  Receipt Date: 20230412
  Transmission Date: 20230722
  Serious: Yes (Hospitalization, Other)
  Sender: FDA-Public Use
  Company Number: CN-Merck Healthcare KGaA-9395205

PATIENT
  Age: 32 Year
  Sex: Male
  Weight: 70 kg

DRUGS (2)
  1. EUTHYROX [Suspect]
     Active Substance: LEVOTHYROXINE SODIUM
     Indication: Post procedural hypothyroidism
     Route: 048
     Dates: start: 20180401, end: 20230406
  2. EUTHYROX [Suspect]
     Active Substance: LEVOTHYROXINE SODIUM
     Indication: Hypothyroidism

REACTIONS (4)
  - Prostatic calcification [Recovering/Resolving]
  - Ureterolithiasis [Recovered/Resolved]
  - Renal hydrocele [Recovering/Resolving]
  - Renal cyst [Recovering/Resolving]

NARRATIVE: CASE EVENT DATE: 20230403
